FAERS Safety Report 24408561 (Version 2)
Quarter: 2025Q3

REPORT INFORMATION
  Report Type: Report from Study
  Country: US (occurrence: US)
  Receive Date: 20241007
  Receipt Date: 20250711
  Transmission Date: 20251020
  Serious: No
  Sender: MERCK SHARP & DOHME LLC
  Company Number: None

PATIENT
  Sex: Male
  Weight: 126.1 kg

DRUGS (26)
  1. WINREVAIR [Suspect]
     Active Substance: SOTATERCEPT-CSRK
     Indication: Pulmonary arterial hypertension
     Route: 058
     Dates: start: 2024
  2. WINREVAIR [Suspect]
     Active Substance: SOTATERCEPT-CSRK
  3. WINREVAIR [Suspect]
     Active Substance: SOTATERCEPT-CSRK
  4. WINREVAIR [Suspect]
     Active Substance: SOTATERCEPT-CSRK
  5. WINREVAIR [Suspect]
     Active Substance: SOTATERCEPT-CSRK
     Indication: Pulmonary arterial hypertension
     Route: 058
  6. WINREVAIR [Suspect]
     Active Substance: SOTATERCEPT-CSRK
  7. WINREVAIR [Suspect]
     Active Substance: SOTATERCEPT-CSRK
  8. WINREVAIR [Suspect]
     Active Substance: SOTATERCEPT-CSRK
  9. ORENITRAM [Concomitant]
     Active Substance: TREPROSTINIL
  10. FAMOTIDINE [Concomitant]
     Active Substance: FAMOTIDINE
  11. METFORMIN HYDROCHLORIDE [Concomitant]
     Active Substance: METFORMIN HYDROCHLORIDE
  12. COLCHICINE [Concomitant]
     Active Substance: COLCHICINE
  13. BUMETANIDE [Concomitant]
     Active Substance: BUMETANIDE
  14. ALLOPURINOL [Concomitant]
     Active Substance: ALLOPURINOL
  15. PANTOPRAZOLE SODIUM [Concomitant]
     Active Substance: PANTOPRAZOLE SODIUM
  16. PRAVASTATIN SODIUM [Concomitant]
     Active Substance: PRAVASTATIN SODIUM
  17. TRELEGY ELLIPTA [Concomitant]
     Active Substance: FLUTICASONE FUROATE\UMECLIDINIUM BROMIDE\VILANTEROL TRIFENATATE
  18. CICLOPIROX [Concomitant]
     Active Substance: CICLOPIROX
  19. FLUTICASONE PROPIONATE [Concomitant]
     Active Substance: FLUTICASONE PROPIONATE
  20. METOPROLOL SUCCINATE [Concomitant]
     Active Substance: METOPROLOL SUCCINATE
  21. AMBRISENTAN [Concomitant]
     Active Substance: AMBRISENTAN
  22. OXYGEN [Concomitant]
     Active Substance: OXYGEN
  23. AMLODIPINE BESYLATE [Concomitant]
     Active Substance: AMLODIPINE BESYLATE
  24. VITAMIN D3 [Concomitant]
     Active Substance: CHOLECALCIFEROL
  25. NIACIN [Concomitant]
     Active Substance: NIACIN
  26. POTASSIUM CHLORIDE [Concomitant]
     Active Substance: POTASSIUM CHLORIDE

REACTIONS (5)
  - Headache [Not Recovered/Not Resolved]
  - Device physical property issue [Unknown]
  - Product preparation issue [Unknown]
  - Product dose omission issue [Unknown]
  - Device difficult to use [Unknown]

NARRATIVE: CASE EVENT DATE: 20240101
